FAERS Safety Report 9301361 (Version 1)
Quarter: 2012Q4

REPORT INFORMATION
  Report Type: Spontaneous
  Country: US (occurrence: None)
  Receive Date: 20121220
  Receipt Date: 20121220
  Transmission Date: 20130627
  Serious: Yes (Other)
  Sender: FDA-Public Use
  Company Number: DKLU1087192

PATIENT
  Age: 27 Year
  Sex: Male

DRUGS (7)
  1. ONFI(CLOBAZAM)(CLOBAZAM)(5 MG) [Suspect]
     Indication: GRAND MAL CONVULSION
     Dates: start: 201205
  2. ONFI(CLOBAZAM)(CLOBAZAM)(5 MG) [Suspect]
     Indication: GRAND MAL CONVULSION
     Dates: start: 20120620
  3. TRANXENE (CLORAZEPATE DIPOTASSIUM) [Concomitant]
  4. LAMICTAL (LAMOTRIGINE) TABLET [Concomitant]
  5. BANZEL (RUFINAMIDE) [Concomitant]
  6. ATIVAN (LORAZEPAM) [Concomitant]
  7. TOPAMAX (TOPIRAMATE) [Concomitant]

REACTIONS (2)
  - Convulsion [None]
  - Disease complication [None]
